FAERS Safety Report 18255453 (Version 1)
Quarter: 2020Q3

REPORT INFORMATION
  Report Type: Spontaneous
  Country: FR (occurrence: FR)
  Receive Date: 20200910
  Receipt Date: 20200910
  Transmission Date: 20201103
  Serious: Yes (Other)
  Sender: FDA-Public Use
  Company Number: FR-GILEAD-2020-0494416

PATIENT
  Age: 31 Year
  Sex: Male

DRUGS (2)
  1. EMTRIVA [Suspect]
     Active Substance: EMTRICITABINE
     Indication: PROPHYLAXIS AGAINST HIV INFECTION
     Route: 048
     Dates: start: 20180715, end: 20200715
  2. TENOFOVIR DISOPROXIL FUMARATE. [Suspect]
     Active Substance: TENOFOVIR DISOPROXIL FUMARATE
     Indication: PROPHYLAXIS AGAINST HIV INFECTION
     Dosage: UNK
     Route: 048
     Dates: start: 20180715, end: 20200715

REACTIONS (2)
  - Treatment failure [Not Recovered/Not Resolved]
  - Acute HIV infection [Not Recovered/Not Resolved]

NARRATIVE: CASE EVENT DATE: 202002
